FAERS Safety Report 6123625-4 (Version None)
Quarter: 2009Q1

REPORT INFORMATION
  Report Type: 
  Country: None (occurrence: None)
  Receive Date: 20090317
  Receipt Date: 20090317
  Transmission Date: 20090719
  Serious: No
  Sender: FDA-Public Use
  Company Number: None

PATIENT
  Sex: Female
  Weight: 84 kg

DRUGS (2)
  1. ROCURONIUM BROMIDE [Suspect]
     Indication: COLECTOMY
     Dosage: 130 MG OVER 47 MINUTES IV
     Route: 042
     Dates: start: 20090120
  2. ZEMURON [Suspect]

REACTIONS (2)
  - DRUG EFFECT DECREASED [None]
  - THERAPEUTIC RESPONSE UNEXPECTED WITH DRUG SUBSTITUTION [None]
